FAERS Safety Report 24320198 (Version 1)
Quarter: 2024Q3

REPORT INFORMATION
  Report Type: Report from Study
  Country: US (occurrence: US)
  Receive Date: 20240914
  Receipt Date: 20240914
  Transmission Date: 20241017
  Serious: Yes (Hospitalization, Other)
  Sender: ABBVIE
  Company Number: US-ABBVIE-5917416

PATIENT
  Sex: Female

DRUGS (1)
  1. IMBRUVICA [Suspect]
     Active Substance: IBRUTINIB
     Indication: Chronic lymphocytic leukaemia
     Route: 048
     Dates: start: 201708

REACTIONS (10)
  - Heart rate decreased [Unknown]
  - Skin cancer [Unknown]
  - Blood pressure decreased [Unknown]
  - Surgery [Unknown]
  - Asthenia [Unknown]
  - Arthropathy [Unknown]
  - Neuropathy peripheral [Unknown]
  - Fall [Unknown]
  - Contusion [Unknown]
  - Surgery [Unknown]
